FAERS Safety Report 6040045-1 (Version None)
Quarter: 2009Q1

REPORT INFORMATION
  Report Type: 
  Country: None (occurrence: None)
  Receive Date: 20090116
  Receipt Date: 20071126
  Transmission Date: 20090719
  Serious: Yes (Other)
  Sender: FDA-Public Use
  Company Number: US-BRISTOL-MYERS SQUIBB COMPANY-13994579

PATIENT
  Age: 54 Year
  Sex: Female

DRUGS (5)
  1. ABILIFY [Suspect]
     Indication: ATTENTION DEFICIT/HYPERACTIVITY DISORDER
     Dosage: PT TAKEN IN MAY 2006 30MG DAILY;JUNE 2006 10MGDAILY;MARCH 2007 7.5MG DAILY. MAY 2007 5MG DAILY.
     Route: 048
     Dates: start: 20051101
  2. ABILIFY [Suspect]
     Indication: BIPOLAR II DISORDER
     Dosage: PT TAKEN IN MAY 2006 30MG DAILY;JUNE 2006 10MGDAILY;MARCH 2007 7.5MG DAILY. MAY 2007 5MG DAILY.
     Route: 048
     Dates: start: 20051101
  3. WELLBUTRIN SR [Concomitant]
  4. RITALIN-SR [Concomitant]
  5. LAMICTAL [Concomitant]

REACTIONS (2)
  - RHABDOMYOLYSIS [None]
  - TARDIVE DYSKINESIA [None]
